FAERS Safety Report 6291620-0 (Version None)
Quarter: 2009Q3

REPORT INFORMATION
  Report Type: 
  Country: None (occurrence: None)
  Receive Date: 20090730
  Receipt Date: 20090730
  Transmission Date: 20100115
  Serious: Yes (Other)
  Sender: FDA-Public Use
  Company Number: None

PATIENT
  Sex: Female
  Weight: 68.0396 kg

DRUGS (10)
  1. AMBIEN [Suspect]
     Indication: INSOMNIA
     Dosage: 5-10MG QD PO
     Route: 048
     Dates: start: 20040101, end: 20061119
  2. PROZAC [Concomitant]
  3. SEROQUEL [Concomitant]
  4. TRAZODONE HCL [Concomitant]
  5. ZYPREXA [Concomitant]
  6. LEVOXYL [Concomitant]
  7. ZYRTEC [Concomitant]
  8. ORTHO TRICLYCLENLO [Concomitant]
  9. FLONASE [Concomitant]
  10. ADVAIR HFA [Concomitant]

REACTIONS (3)
  - ABNORMAL SLEEP-RELATED EVENT [None]
  - INTENTIONAL SELF-INJURY [None]
  - SKIN LACERATION [None]
